FAERS Safety Report 5260997-7 (Version None)
Quarter: 2007Q1

REPORT INFORMATION
  Report Type: 
  Country: None (occurrence: None)
  Receive Date: 20070306
  Receipt Date: 20070220
  Transmission Date: 20070707
  Serious: Yes (Hospitalization)
  Sender: FDA-Public Use
  Company Number: 2007RR-05581

PATIENT
  Age: 62 Year
  Weight: 80 kg

DRUGS (2)
  1. ETODOLAC [Suspect]
     Dosage: 600 MG, QD, ORAL
     Route: 048
     Dates: start: 20070130
  2. LISINOPRIL [Concomitant]

REACTIONS (3)
  - ANAEMIA [None]
  - FAECES DISCOLOURED [None]
  - GASTROINTESTINAL HAEMORRHAGE [None]
